FAERS Safety Report 22362623 (Version 2)
Quarter: 2023Q2

REPORT INFORMATION
  Report Type: Spontaneous
  Country: US (occurrence: US)
  Receive Date: 20230524
  Receipt Date: 20230601
  Transmission Date: 20230722
  Serious: No
  Sender: FDA-Public Use
  Company Number: US-BIOMARINAP-US-2023-150505

PATIENT

DRUGS (1)
  1. NAGLAZYME [Suspect]
     Active Substance: GALSULFASE
     Indication: Mucopolysaccharidosis VI
     Dosage: 10 MILLIGRAM, QW
     Route: 042
     Dates: start: 20200617

REACTIONS (3)
  - Animal scratch [Recovered/Resolved]
  - Joint injury [Recovered/Resolved]
  - Fall [Recovered/Resolved]
